FAERS Safety Report 24064764 (Version 2)
Quarter: 2024Q3

REPORT INFORMATION
  Report Type: Spontaneous
  Country: SE (occurrence: SE)
  Receive Date: 20240709
  Receipt Date: 20240729
  Transmission Date: 20241017
  Serious: Yes (Disabling, Other)
  Sender: AMGEN
  Company Number: None

PATIENT
  Age: 75 Year
  Sex: Male
  Weight: 82 kg

DRUGS (2)
  1. REPATHA [Suspect]
     Active Substance: EVOLOCUMAB
     Indication: Blood cholesterol
     Dosage: ONE TIME PER 14TH DAY. DOSE: 3RD DOSE DOS: 4TH DOSE
     Route: 030
     Dates: start: 20240328, end: 20240426
  2. IMDUR [Concomitant]
     Active Substance: ISOSORBIDE MONONITRATE
     Dosage: 1
     Route: 048

REACTIONS (9)
  - Erectile dysfunction [Not Recovered/Not Resolved]
  - Sciatic nerve injury [Not Recovered/Not Resolved]
  - Depression [Not Recovered/Not Resolved]
  - Limb injury [Not Recovered/Not Resolved]
  - Myalgia [Not Recovered/Not Resolved]
  - Toothache [Not Recovered/Not Resolved]
  - Tinnitus [Not Recovered/Not Resolved]
  - Dizziness [Unknown]
  - Arthralgia [Not Recovered/Not Resolved]

NARRATIVE: CASE EVENT DATE: 20240101
